FAERS Safety Report 12461146 (Version 1)
Quarter: 2016Q2

REPORT INFORMATION
  Report Type: Spontaneous
  Country: US (occurrence: US)
  Receive Date: 20160613
  Receipt Date: 20160613
  Transmission Date: 20160815
  Serious: No
  Sender: FDA-Public Use
  Company Number: US-US WORLDMEDS, LLC-USW201601-000024

PATIENT
  Age: 72 Year
  Sex: Male
  Weight: 68.03 kg

DRUGS (12)
  1. FINASTERIDE. [Concomitant]
     Active Substance: FINASTERIDE
     Route: 048
     Dates: start: 20150928
  2. METFORMIN HCL [Concomitant]
     Active Substance: METFORMIN HYDROCHLORIDE
     Route: 048
     Dates: start: 20150928
  3. LISINOPRIL. [Concomitant]
     Active Substance: LISINOPRIL
     Route: 048
     Dates: start: 20150928
  4. METOPROLOL TARTRATE. [Concomitant]
     Active Substance: METOPROLOL TARTRATE
     Route: 048
     Dates: start: 20150928
  5. TERAZOSIN HCL [Concomitant]
     Active Substance: TERAZOSIN HYDROCHLORIDE
     Route: 048
     Dates: start: 20150928
  6. APOKYN [Suspect]
     Active Substance: APOMORPHINE HYDROCHLORIDE
     Indication: PARKINSON^S DISEASE
     Route: 058
     Dates: start: 20160106, end: 20160106
  7. SINEMET [Concomitant]
     Active Substance: CARBIDOPA\LEVODOPA
     Route: 048
  8. ATORVASTATIN CALCIUM. [Concomitant]
     Active Substance: ATORVASTATIN CALCIUM
     Route: 048
     Dates: start: 20150928
  9. PRAMIPEXOLE. [Concomitant]
     Active Substance: PRAMIPEXOLE
  10. LASIX [Concomitant]
     Active Substance: FUROSEMIDE
     Route: 048
     Dates: start: 20150928
  11. OMEPRAZOLE DELAYED RELEASE [Concomitant]
     Active Substance: OMEPRAZOLE
     Route: 048
     Dates: start: 20150928
  12. NO DRUG NAME [Suspect]
     Active Substance: UNSPECIFIED INGREDIENT

REACTIONS (2)
  - Somnolence [Recovered/Resolved]
  - Hypotension [Recovered/Resolved]

NARRATIVE: CASE EVENT DATE: 20160106
